FAERS Safety Report 20179489 (Version 1)
Quarter: 2021Q4

REPORT INFORMATION
  Report Type: Spontaneous
  Country: IR (occurrence: None)
  Receive Date: 20211214
  Receipt Date: 20211214
  Transmission Date: 20220303
  Serious: Yes (Hospitalization, Congenital Anomaly)
  Sender: FDA-Public Use
  Company Number: 2021A864017

PATIENT
  Age: 5 Day
  Sex: Male

DRUGS (8)
  1. QUETIAPINE [Suspect]
     Active Substance: QUETIAPINE
     Dosage: MOTHER^S REGULAR DOSING
     Route: 064
  2. QUETIAPINE [Suspect]
     Active Substance: QUETIAPINE
     Dosage: MOTHER^S SUICIDE ATTEMPT DOSE
     Route: 064
  3. RISPERIDONE [Suspect]
     Active Substance: RISPERIDONE
     Dosage: MOTHER^S REGULAR DOSING
     Route: 064
  4. RISPERIDONE [Suspect]
     Active Substance: RISPERIDONE
     Dosage: MOTHER^S SUICIDE ATTEMPT DOSE
     Route: 064
  5. SERTRALINE [Suspect]
     Active Substance: SERTRALINE HYDROCHLORIDE
     Dosage: MOTHER^S REGULAR DOSING
     Route: 064
  6. SERTRALINE [Suspect]
     Active Substance: SERTRALINE HYDROCHLORIDE
     Dosage: MOTHER^S SUICIDE ATTEMPT DOSE
     Route: 064
  7. CLONAZEPAM [Suspect]
     Active Substance: CLONAZEPAM
     Dosage: MOTHER^S REGULAR DOSING
     Route: 064
  8. CLONAZEPAM [Suspect]
     Active Substance: CLONAZEPAM
     Dosage: MOTHER^S SUICIDE ATTEMPT DOSE
     Route: 064

REACTIONS (15)
  - Neonatal seizure [Recovered/Resolved]
  - Infantile apnoea [Recovered/Resolved]
  - Ammonia increased [Recovered/Resolved]
  - Blood lactic acid increased [Recovered/Resolved]
  - Jaundice neonatal [Recovered/Resolved]
  - Intraventricular haemorrhage neonatal [Recovered/Resolved]
  - Cryptorchism [Recovered/Resolved]
  - Hydronephrosis [Recovered/Resolved]
  - Atrial septal defect [Recovered/Resolved]
  - Patent ductus arteriosus [Recovered/Resolved]
  - Tricuspid valve incompetence [Recovered/Resolved]
  - Meconium aspiration syndrome [Recovered/Resolved]
  - Intracranial mass [Recovered/Resolved]
  - Neonatal asphyxia [Recovered/Resolved]
  - Paraesthesia [Not Recovered/Not Resolved]
